FAERS Safety Report 6725890-9 (Version None)
Quarter: 2010Q2

REPORT INFORMATION
  Report Type: 
  Country: None (occurrence: None)
  Receive Date: 20100514
  Receipt Date: 20100504
  Transmission Date: 20101027
  Serious: Yes (Other)
  Sender: FDA-Public Use
  Company Number: JP-PFIZER INC-2009154820

PATIENT
  Age: 70 Year
  Sex: Female

DRUGS (1)
  1. SEIBULE [Suspect]
     Dosage: UNK MG, UNK
     Route: 048
     Dates: start: 20080529, end: 20080709

REACTIONS (1)
  - LIVER DISORDER [None]
